FAERS Safety Report 16776534 (Version 2)
Quarter: 2019Q3

REPORT INFORMATION
  Report Type: Spontaneous
  Country: US (occurrence: US)
  Receive Date: 20190905
  Receipt Date: 20190927
  Transmission Date: 20191005
  Serious: Yes (Other)
  Sender: FDA-Public Use
  Company Number: US-ROCHE-2395072

PATIENT
  Age: 32 Year
  Sex: Male
  Weight: 96.7 kg

DRUGS (19)
  1. APIDRA [Concomitant]
     Active Substance: INSULIN GLULISINE
     Indication: DIABETES MELLITUS
     Dosage: 100 UNITS PER ML
     Route: 058
  2. LORADINE [Concomitant]
     Active Substance: LORATADINE
     Indication: SEASONAL ALLERGY
     Route: 048
     Dates: start: 20180821
  3. CETRIZINE [Concomitant]
     Active Substance: CETIRIZINE HYDROCHLORIDE
     Route: 048
     Dates: start: 20190604
  4. LEVOCETIRIZINE DIHYDROCHLORIDE. [Concomitant]
     Active Substance: LEVOCETIRIZINE DIHYDROCHLORIDE
     Route: 048
     Dates: start: 20190430
  5. XOLAIR [Suspect]
     Active Substance: OMALIZUMAB
     Indication: URTICARIA CHRONIC
     Dosage: PRE-FILLED SYRINGE?ON 31/JUL/2019, PATIENT RECEIVED DOSE OF XOLAIR
     Route: 058
     Dates: start: 20190723, end: 20190801
  6. EPINEPHRINE. [Concomitant]
     Active Substance: EPINEPHRINE
     Indication: SEASONAL ALLERGY
     Dosage: 0.3MG/0.3 ML
     Route: 058
     Dates: start: 20180327
  7. LORATADINE. [Concomitant]
     Active Substance: LORATADINE
     Dosage: BEDTIME
     Route: 048
  8. BASAGLAR [Concomitant]
     Active Substance: INSULIN GLARGINE
     Indication: DIABETES MELLITUS
     Dosage: 100 UNIT/ML
     Route: 058
  9. PHENTERMINE HCL [Concomitant]
     Active Substance: PHENTERMINE HYDROCHLORIDE
     Route: 048
  10. PROVENTIL HFA [SALBUTAMOL] [Concomitant]
     Dosage: 108MCG/ACT
     Route: 065
     Dates: start: 20180327
  11. ASPIRIN [ACETYLSALICYLIC ACID] [Concomitant]
     Active Substance: ASPIRIN
     Indication: ASTHMA
     Route: 065
  12. PREDNISONE. [Concomitant]
     Active Substance: PREDNISONE
     Indication: SEASONAL ALLERGY
     Route: 048
     Dates: start: 20190716
  13. KETOTIFEN FUMARATE. [Concomitant]
     Active Substance: KETOTIFEN FUMARATE
     Indication: SEASONAL ALLERGY
     Route: 048
     Dates: start: 20180327
  14. PHENTERMINE HCL [Concomitant]
     Active Substance: PHENTERMINE HYDROCHLORIDE
     Indication: SEASONAL ALLERGY
     Route: 048
     Dates: start: 20180604
  15. SINGULAIR [Concomitant]
     Active Substance: MONTELUKAST SODIUM
     Dosage: BEDTIME
     Route: 048
     Dates: start: 20180522
  16. ALBUTEROL SULFATE. [Concomitant]
     Active Substance: ALBUTEROL SULFATE
     Dosage: 108MCG/ ACT
     Route: 065
     Dates: start: 20190910
  17. FLUTICASONE [FLUTICASONE PROPIONATE] [Concomitant]
     Indication: ASTHMA
     Dosage: 50 MCG/ACT
     Route: 065
     Dates: start: 20180327
  18. ZYRTEC [Concomitant]
     Active Substance: CETIRIZINE HYDROCHLORIDE
     Indication: SEASONAL ALLERGY
     Route: 048
     Dates: start: 20190719
  19. HYDROCORTISONE. [Concomitant]
     Active Substance: HYDROCORTISONE
     Route: 065
     Dates: start: 20180529

REACTIONS (1)
  - Anaphylactic reaction [Recovered/Resolved]

NARRATIVE: CASE EVENT DATE: 20190731
